FAERS Safety Report 21251202 (Version 1)
Quarter: 2022Q3

REPORT INFORMATION
  Report Type: Spontaneous
  Country: US (occurrence: US)
  Receive Date: 20220825
  Receipt Date: 20220825
  Transmission Date: 20221026
  Serious: Yes (Life-Threatening, Hospitalization, Other)
  Sender: FDA-Public Use
  Company Number: None

PATIENT
  Age: 67 Year
  Sex: Female

DRUGS (8)
  1. PREDNISOLONE [Suspect]
     Active Substance: PREDNISOLONE
     Indication: Back pain
     Dosage: 50 MILLIGRAM,DAILY  (1500 MILLIGRAMS FOR 30 DAYS, SIX COURSES OVER A PERIOD OF THREE MONTHS)
     Route: 065
  2. DEXAMETHASONE [Suspect]
     Active Substance: DEXAMETHASONE
     Indication: Immunosuppressant drug therapy
     Dosage: UNK (ON THE DAY OF SURGERY)
     Route: 065
  3. DEXAMETHASONE [Suspect]
     Active Substance: DEXAMETHASONE
     Dosage: 10 MILLIGRAM, BID (ON POST-OPERATIVE DAY 1)
     Route: 065
  4. DEXAMETHASONE [Suspect]
     Active Substance: DEXAMETHASONE
     Dosage: 8 MILLIGRAM, BID (BETWEEN POST-OPERATIVE DAY 1 AND 2)
     Route: 065
  5. DEXAMETHASONE [Suspect]
     Active Substance: DEXAMETHASONE
     Dosage: 6 MILLIGRAM (BETWEEN POST-OPERATIVE DAY 1 AND 2 (6MG ONCE))
     Route: 065
  6. HYDROCORTISONE [Suspect]
     Active Substance: HYDROCORTISONE
     Indication: Immunosuppressant drug therapy
     Dosage: 100 MILLIGRAM (ON THE DAY OF SURGERY)
     Route: 065
  7. HYDROCORTISONE [Suspect]
     Active Substance: HYDROCORTISONE
     Dosage: 50 MILLIGRAM, EVERY 6 HRS
     Route: 065
  8. HYDROCORTISONE [Suspect]
     Active Substance: HYDROCORTISONE
     Dosage: 25 MILLIGRAM, EVERY 6 HRS
     Route: 065

REACTIONS (10)
  - Respiratory failure [Recovered/Resolved]
  - Acute respiratory distress syndrome [Recovered/Resolved]
  - Acute kidney injury [Recovered/Resolved]
  - Septic shock [Recovered/Resolved]
  - Herpes simplex reactivation [Recovered/Resolved]
  - Candida infection [Recovered/Resolved]
  - Herpes simplex oesophagitis [Recovered/Resolved]
  - Systemic candida [Recovered/Resolved]
  - Herpes simplex viraemia [Recovered/Resolved]
  - Off label use [Unknown]
